FAERS Safety Report 8660741 (Version 3)
Quarter: 2014Q2

REPORT INFORMATION
  Report Type: Spontaneous
  Country: FR (occurrence: FR)
  Receive Date: 20120711
  Receipt Date: 20140606
  Transmission Date: 20141212
  Serious: Yes (Other)
  Sender: FDA-Public Use
  Company Number: FR-009507513-2012SP036131

PATIENT
  Age: 55 Year
  Sex: Female
  Weight: 110 kg

DRUGS (6)
  1. VICTRELIS [Suspect]
     Indication: HEPATITIS C
     Dosage: 800 MG, TID
     Dates: start: 20110422, end: 20120227
  2. VIRAFERONPEG [Suspect]
     Indication: HEPATITIS C
     Dosage: 135 ?G, QW
     Dates: start: 20110325, end: 20120227
  3. REBETOL [Suspect]
     Indication: HEPATITIS C
     Dosage: 1400 MG, QD
     Dates: start: 20110325, end: 20120227
  4. SEROPLEX [Concomitant]
     Indication: DEPRESSION
     Dosage: 20 MG, QD
     Dates: start: 2011
  5. XANAX [Concomitant]
     Indication: ANXIETY
     Dosage: 0.25 MG, QD
     Dates: start: 2011
  6. NEORECORMON [Concomitant]
     Indication: ANAEMIA
     Dosage: 30000 IU, QW
     Dates: start: 20110516, end: 20120227

REACTIONS (1)
  - Neutropenia [Recovered/Resolved]
